FAERS Safety Report 21308755 (Version 1)
Quarter: 2022Q3

REPORT INFORMATION
  Report Type: Spontaneous
  Country: US (occurrence: US)
  Receive Date: 20220908
  Receipt Date: 20220908
  Transmission Date: 20221027
  Serious: No
  Sender: FDA-Public Use
  Company Number: US-SA-SAC20220819001681

PATIENT

DRUGS (1)
  1. LARONIDASE [Suspect]
     Active Substance: LARONIDASE
     Indication: Mucopolysaccharidosis I
     Dosage: 8.7 DF, QW
     Route: 042
     Dates: start: 20220814

REACTIONS (3)
  - Anaesthetic complication [Unknown]
  - Corneal disorder [Unknown]
  - Breathing-related sleep disorder [Unknown]

NARRATIVE: CASE EVENT DATE: 20220801
